FAERS Safety Report 5021292-4 (Version None)
Quarter: 2006Q2

REPORT INFORMATION
  Report Type: 
  Country: None (occurrence: None)
  Receive Date: 20060608
  Receipt Date: 20060510
  Transmission Date: 20061013
  Serious: Yes (Life-Threatening, Hospitalization, Disabling)
  Sender: FDA-Public Use
  Company Number: JP-JPN-A200601498

PATIENT
  Age: 32 Year
  Sex: Female

DRUGS (16)
  1. PAXIL [Suspect]
     Indication: DEPRESSION
     Route: 048
     Dates: start: 20050906, end: 20051010
  2. RHYTHMY [Suspect]
     Indication: INSOMNIA
     Route: 048
     Dates: start: 20050830, end: 20050926
  3. MEILAX [Suspect]
     Indication: ANXIETY
     Route: 048
     Dates: start: 20050906, end: 20051003
  4. LEVOTOMIN [Suspect]
     Indication: INSOMNIA
     Route: 048
     Dates: start: 20050927
  5. DEPAS [Suspect]
     Indication: INSOMNIA
     Dosage: 3MG PER DAY
     Route: 048
     Dates: start: 20050927, end: 20051003
  6. HALRACK [Suspect]
     Indication: INSOMNIA
     Dosage: 1MG PER DAY
     Route: 048
     Dates: start: 20051001, end: 20051003
  7. LANDSEN [Concomitant]
     Indication: ANXIETY
     Route: 048
     Dates: start: 20050830, end: 20051121
  8. SILECE [Concomitant]
     Indication: INSOMNIA
     Route: 048
     Dates: start: 20050927, end: 20050930
  9. MYSLEE [Concomitant]
     Indication: INSOMNIA
     Route: 048
     Dates: start: 20051004
  10. UBRETID [Concomitant]
     Indication: URINARY RETENTION
     Dosage: 5MG PER DAY
     Route: 048
     Dates: start: 20051007, end: 20051107
  11. ZYPREXA [Concomitant]
     Dosage: 5MG PER DAY
     Route: 048
     Dates: start: 20051018, end: 20060109
  12. SENNARIDE [Concomitant]
     Indication: CONSTIPATION
     Route: 048
     Dates: start: 20051028
  13. AMOBAN [Concomitant]
     Indication: INSOMNIA
     Dosage: 10MG PER DAY
     Route: 048
     Dates: start: 20051206, end: 20060417
  14. BENZALIN [Concomitant]
     Indication: INSOMNIA
     Route: 048
     Dates: start: 20060110, end: 20060123
  15. LITHIUM CARBONATE [Concomitant]
     Indication: MANIA
     Route: 048
     Dates: start: 20060124
  16. RISPERDAL [Concomitant]
     Indication: MANIA
     Route: 048
     Dates: start: 20060124

REACTIONS (3)
  - SELF INJURIOUS BEHAVIOUR [None]
  - SUICIDAL IDEATION [None]
  - SUICIDE ATTEMPT [None]
